FAERS Safety Report 13424473 (Version 1)
Quarter: 2017Q2

REPORT INFORMATION
  Report Type: Spontaneous
  Country: IT (occurrence: IT)
  Receive Date: 20170410
  Receipt Date: 20170410
  Transmission Date: 20170830
  Serious: Yes (Hospitalization)
  Sender: FDA-Public Use
  Company Number: IT-MYLANLABS-2017M1022060

PATIENT

DRUGS (4)
  1. PANTORC [Concomitant]
     Active Substance: PANTOPRAZOLE SODIUM
     Indication: PRODUCT USED FOR UNKNOWN INDICATION
     Dosage: UNK
  2. PORTOLAC [Concomitant]
     Active Substance: LACTITOL
     Indication: PRODUCT USED FOR UNKNOWN INDICATION
     Dosage: 66.67G/100ML
  3. FONDAPARINUX [Suspect]
     Active Substance: FONDAPARINUX
     Indication: PULMONARY EMBOLISM
     Dosage: 7.5MG/0.6ML, DAILY (7.5MG,1 IN 1)
     Route: 058
     Dates: start: 20170308, end: 20170326
  4. TACHIPIRINA [Concomitant]
     Active Substance: ACETAMINOPHEN
     Indication: PRODUCT USED FOR UNKNOWN INDICATION
     Dosage: UNK

REACTIONS (5)
  - Red blood cell count decreased [Recovering/Resolving]
  - Haematocrit decreased [Recovering/Resolving]
  - Haematoma [Recovering/Resolving]
  - Off label use [Unknown]
  - Haemoglobin decreased [Recovering/Resolving]

NARRATIVE: CASE EVENT DATE: 20170308
